FAERS Safety Report 8211378-5 (Version None)
Quarter: 2012Q1

REPORT INFORMATION
  Report Type: 
  Country: None (occurrence: None)
  Receive Date: 20120229
  Receipt Date: 20111223
  Transmission Date: 20120608
  Serious: Yes (Hospitalization)
  Sender: FDA-Public Use
  Company Number: PHEH2011US012507

PATIENT
  Age: 23 Year
  Sex: Female
  Weight: 53.1 kg

DRUGS (2)
  1. TOBI [Suspect]
     Dosage: 300 MG, BID FOR 28 DAYS ON AND 28 DAYS OFF, INHALATION
     Route: 055
     Dates: start: 20100707
  2. PULMOZYME [Concomitant]

REACTIONS (1)
  - PNEUMONIA [None]
